FAERS Safety Report 19784345 (Version 1)
Quarter: 2021Q3

REPORT INFORMATION
  Report Type: Other
  Country: US (occurrence: US)
  Receive Date: 20210903
  Receipt Date: 20210903
  Transmission Date: 20211014
  Serious: Yes (Other)
  Sender: FDA-Public Use
  Company Number: US-ROCHE-2903483

PATIENT
  Age: 22 Year
  Sex: Male

DRUGS (15)
  1. DAPSONE. [Concomitant]
     Active Substance: DAPSONE
  2. MUPIROCIN. [Concomitant]
     Active Substance: MUPIROCIN
     Route: 061
  3. TOCILIZUMAB. [Suspect]
     Active Substance: TOCILIZUMAB
     Indication: IMMUNOSUPPRESSION
     Route: 065
  4. TACROLIMUS. [Concomitant]
     Active Substance: TACROLIMUS
  5. METHOTREXATE. [Concomitant]
     Active Substance: METHOTREXATE
  6. FLUDARABINE [Concomitant]
     Active Substance: FLUDARABINE PHOSPHATE
  7. DEXAMETHASONE. [Concomitant]
     Active Substance: DEXAMETHASONE
  8. ETOPOSIDE. [Concomitant]
     Active Substance: ETOPOSIDE
  9. SILVER SULFADIAZINE. [Concomitant]
     Active Substance: SILVER SULFADIAZINE
  10. ALEMTUZUMAB [Concomitant]
     Active Substance: ALEMTUZUMAB
  11. ALLOPURINOL. [Concomitant]
     Active Substance: ALLOPURINOL
  12. RITUXIMAB. [Suspect]
     Active Substance: RITUXIMAB
     Indication: IMMUNOSUPPRESSION
     Route: 065
  13. MELPHALAN. [Concomitant]
     Active Substance: MELPHALAN
  14. BUDESONIDE. [Concomitant]
     Active Substance: BUDESONIDE
  15. BEXAROTENE. [Concomitant]
     Active Substance: BEXAROTENE

REACTIONS (3)
  - Pneumonia escherichia [Unknown]
  - Pneumonia bacterial [Unknown]
  - Cutaneous T-cell lymphoma [Unknown]
